FAERS Safety Report 10152674 (Version 2)
Quarter: 2014Q3

REPORT INFORMATION
  Report Type: Spontaneous
  Country: US (occurrence: US)
  Receive Date: 20140505
  Receipt Date: 20140820
  Transmission Date: 20150326
  Serious: Yes (Hospitalization)
  Sender: FDA-Public Use
  Company Number: US-BAYER-2014-064598

PATIENT
  Age: 40 Year
  Sex: Female
  Weight: 73.47 kg

DRUGS (3)
  1. ERGOCALCIFEROL. [Concomitant]
     Active Substance: ERGOCALCIFEROL
     Dosage: 50000 UNK, ONCE WEEKLY
     Route: 048
  2. DIFLUCAN [Concomitant]
     Active Substance: FLUCONAZOLE
     Indication: FUNGAL INFECTION
  3. MIRENA [Suspect]
     Active Substance: LEVONORGESTREL
     Indication: CONTRACEPTION
     Dosage: 20 MCG/24HR, CONT
     Route: 015
     Dates: start: 20080731, end: 20120518

REACTIONS (5)
  - Pain [None]
  - Anxiety [None]
  - Injury [None]
  - Uterine perforation [None]
  - Emotional distress [None]

NARRATIVE: CASE EVENT DATE: 2011
